FAERS Safety Report 20994943 (Version 3)
Quarter: 2022Q3

REPORT INFORMATION
  Report Type: Spontaneous
  Country: BR (occurrence: BR)
  Receive Date: 20220622
  Receipt Date: 20220718
  Transmission Date: 20221026
  Serious: Yes (Other)
  Sender: FDA-Public Use
  Company Number: BR-NOVARTISPH-NVSC2022BR142437

PATIENT
  Age: 50 Year
  Sex: Female
  Weight: 51 kg

DRUGS (5)
  1. TEGRETOL XR [Suspect]
     Active Substance: CARBAMAZEPINE
     Indication: Epilepsy
     Dosage: 400 MG, (20 CE)
     Route: 065
  2. TEGRETOL XR [Suspect]
     Active Substance: CARBAMAZEPINE
     Dosage: 1 DOSAGE FORM, BID. START DATE- ABOUT WHEN WAS 10 YEARS OLD
     Route: 048
  3. ATENOLOL\CHLORTHALIDONE [Suspect]
     Active Substance: ATENOLOL\CHLORTHALIDONE
     Indication: Hypertension
     Dosage: 1 DOSAGE FORM, AT NIGHT, (START DATE- LAST YEAR (COULD NOT INFORM THE DATE), (STOP DATE- AFTER ONE M
     Route: 048
  4. DEPAKENE [Concomitant]
     Active Substance: VALPROIC ACID
     Indication: Epilepsy
     Dosage: 1 DOSAGE FORM, QD, (START DATE - ABOUT 20 YEARS AGO  AND STOP DATE- ABOUT 3 YEARS AGO)
     Route: 048
  5. PHENOBARBITAL [Concomitant]
     Active Substance: PHENOBARBITAL
     Indication: Epilepsy
     Dosage: 1 DOSAGE FORM, WHEN NECESSARY (AT LUNCH AND DINNER), (START DATE- ABOUT WHEN WAS 10 YEARS OLD)
     Route: 048

REACTIONS (19)
  - Syncope [Recovered/Resolved]
  - Tongue disorder [Recovered/Resolved]
  - Foaming at mouth [Recovered/Resolved]
  - Oral discomfort [Recovered/Resolved]
  - Heart rate increased [Recovered/Resolved]
  - Rheumatic disorder [Not Recovered/Not Resolved]
  - Fibromyalgia [Not Recovered/Not Resolved]
  - Musculoskeletal chest pain [Not Recovered/Not Resolved]
  - Erythema [Not Recovered/Not Resolved]
  - Facial pain [Not Recovered/Not Resolved]
  - Insomnia [Recovering/Resolving]
  - Asthenia [Recovered/Resolved]
  - Leukaemia [Recovered/Resolved]
  - Systemic lupus erythematosus [Not Recovered/Not Resolved]
  - Headache [Recovered/Resolved]
  - Arthropathy [Not Recovered/Not Resolved]
  - Blood pressure decreased [Recovering/Resolving]
  - Hypertension [Not Recovered/Not Resolved]
  - Product availability issue [Unknown]

NARRATIVE: CASE EVENT DATE: 20210101
